FAERS Safety Report 7810282-1 (Version None)
Quarter: 2011Q4

REPORT INFORMATION
  Report Type: 
  Country: None (occurrence: None)
  Receive Date: 20111012
  Receipt Date: 20111010
  Transmission Date: 20120403
  Serious: Yes (Death, Other)
  Sender: FDA-Public Use
  Company Number: VE-PFIZER INC-2011235539

PATIENT
  Age: 89 Year
  Sex: Female

DRUGS (4)
  1. NEURONTIN [Concomitant]
     Indication: OSTEOARTHRITIS
     Route: 048
  2. AMLODIPINE [Concomitant]
     Indication: HYPERTENSION
     Dosage: 5 MG, 1X/DAY
     Route: 048
  3. CALCIUM [Concomitant]
     Indication: OSTEOPOROSIS
     Route: 048
  4. CADUET [Suspect]
     Indication: HYPERTENSION
     Dosage: AMLODIPINE BESILATE 5 MG/ATORVASTATIN CALCIUM 20 MG, UNK
     Route: 048

REACTIONS (6)
  - WALKING DISABILITY [None]
  - LIVER ABSCESS [None]
  - SENILE DEMENTIA [None]
  - BRONCHITIS [None]
  - RESPIRATORY ARREST [None]
  - AGGRESSION [None]
